FAERS Safety Report 15420670 (Version 1)
Quarter: 2018Q3

REPORT INFORMATION
  Report Type: Spontaneous
  Country: US (occurrence: US)
  Receive Date: 20180924
  Receipt Date: 20180924
  Transmission Date: 20181010
  Serious: No
  Sender: FDA-Public Use
  Company Number: US-ALLERGAN-1817287US

PATIENT
  Age: 61 Year
  Sex: Female

DRUGS (3)
  1. LINZESS [Suspect]
     Active Substance: LINACLOTIDE
     Indication: PRODUCT USED FOR UNKNOWN INDICATION
     Dosage: UNK
     Dates: start: 201803
  2. LINZESS [Suspect]
     Active Substance: LINACLOTIDE
     Dosage: UNK
  3. RUCAPARIB [Suspect]
     Active Substance: RUCAPARIB
     Indication: OVARIAN CANCER
     Dosage: 600 MG, BID
     Route: 048
     Dates: start: 20180302

REACTIONS (6)
  - Pruritus [Recovered/Resolved]
  - Diarrhoea [Unknown]
  - Abdominal distension [Unknown]
  - Fatigue [Not Recovered/Not Resolved]
  - Blister [Unknown]
  - Wound haemorrhage [Unknown]

NARRATIVE: CASE EVENT DATE: 201803
